FAERS Safety Report 4986903-8 (Version None)
Quarter: 2006Q2

REPORT INFORMATION
  Report Type: 
  Country: None (occurrence: None)
  Receive Date: 20060501
  Receipt Date: 20060419
  Transmission Date: 20061013
  Serious: Yes (Other)
  Sender: FDA-Public Use
  Company Number: PHBS2006SE05672

PATIENT
  Age: 75 Year
  Sex: Female

DRUGS (8)
  1. AREDIA [Suspect]
     Indication: MULTIPLE MYELOMA
     Dosage: 90 MG, QMO
     Route: 065
     Dates: start: 20000401
  2. ZOMETA [Suspect]
     Indication: MULTIPLE MYELOMA
     Dosage: 4 MG, QMO
     Route: 065
     Dates: start: 20020901
  3. SALURES-K [Concomitant]
     Route: 065
  4. DELTISON [Concomitant]
     Route: 065
  5. ALKERAN [Concomitant]
     Route: 065
  6. MIDAMOR [Concomitant]
     Route: 065
  7. LASIX [Concomitant]
     Route: 065
  8. ARANESP [Concomitant]
     Route: 065

REACTIONS (1)
  - OSTEONECROSIS [None]
